FAERS Safety Report 5125973-3 (Version None)
Quarter: 2006Q4

REPORT INFORMATION
  Report Type: 
  Country: None (occurrence: None)
  Receive Date: 20061010
  Receipt Date: 20061010
  Transmission Date: 20070319
  Serious: Yes (Hospitalization)
  Sender: FDA-Public Use
  Company Number: None

PATIENT
  Age: 27 Year
  Sex: Male

DRUGS (5)
  1. MARINOL [Suspect]
     Indication: INCREASED APPETITE
     Dosage: 2.5MG PO QD
     Route: 048
     Dates: start: 20060702, end: 20060813
  2. MARINOL [Suspect]
     Indication: NAUSEA
     Dosage: 2.5MG PO QD
     Route: 048
     Dates: start: 20060702, end: 20060813
  3. MARINOL [Suspect]
     Indication: VOMITING
     Dosage: 2.5MG PO QD
     Route: 048
     Dates: start: 20060702, end: 20060813
  4. KEPPRA [Concomitant]
  5. ZOFRAN [Concomitant]

REACTIONS (3)
  - POSTOPERATIVE WOUND INFECTION [None]
  - STAPHYLOCOCCAL INFECTION [None]
  - WOUND INFECTION [None]
